FAERS Safety Report 20508794 (Version 2)
Quarter: 2022Q1

REPORT INFORMATION
  Report Type: Spontaneous
  Country: US (occurrence: US)
  Receive Date: 20220223
  Receipt Date: 20220302
  Transmission Date: 20220423
  Serious: Yes (Hospitalization, Disabling, Other)
  Sender: FDA-Public Use
  Company Number: US-MLMSERVICE-20220214-3366532-1

PATIENT
  Age: 58 Year
  Sex: Male

DRUGS (12)
  1. METHYLPREDNISOLONE SODIUM SUCCINATE [Suspect]
     Active Substance: METHYLPREDNISOLONE SODIUM SUCCINATE
     Indication: Immune-mediated hepatitis
     Dosage: 60 MG, SINGLE
     Route: 042
  2. METHYLPREDNISOLONE SODIUM SUCCINATE [Suspect]
     Active Substance: METHYLPREDNISOLONE SODIUM SUCCINATE
     Dosage: 2 MG/KG, 1X/DAY
     Route: 042
  3. METHYLPREDNISOLONE SODIUM SUCCINATE [Suspect]
     Active Substance: METHYLPREDNISOLONE SODIUM SUCCINATE
     Dosage: 1 MG/KG, 1X/DAY
     Route: 042
  4. IPILIMUMAB [Suspect]
     Active Substance: IPILIMUMAB
     Indication: Metastatic malignant melanoma
     Dosage: 3MG/KG FOR 3 CYCLES
  5. NIVOLUMAB [Suspect]
     Active Substance: NIVOLUMAB
     Indication: Metastatic malignant melanoma
     Dosage: 1MG/KG FOR 3 CYCLES
  6. PREDNISONE [Suspect]
     Active Substance: PREDNISONE
     Indication: Immune-mediated hepatitis
     Dosage: 120 MG, 1X/DAY
  7. PREDNISONE [Suspect]
     Active Substance: PREDNISONE
     Dosage: 80 MG, 1X/DAY
  8. PREDNISONE [Suspect]
     Active Substance: PREDNISONE
     Dosage: 120 MG, 1X/DAY
  9. PREDNISONE [Suspect]
     Active Substance: PREDNISONE
     Dosage: 150 MG, 1X/DAY
  10. MYCOPHENOLIC ACID [Concomitant]
     Active Substance: MYCOPHENOLIC ACID
     Indication: Immune-mediated hepatitis
     Dosage: 1500 MG, 1X/DAY
  11. MYCOPHENOLIC ACID [Concomitant]
     Active Substance: MYCOPHENOLIC ACID
     Dosage: 3000 MG, 1X/DAY
  12. MYCOPHENOLIC ACID [Concomitant]
     Active Substance: MYCOPHENOLIC ACID
     Dosage: 1000 MG, 1X/DAY

REACTIONS (2)
  - Tendon rupture [Not Recovered/Not Resolved]
  - Motor dysfunction [Unknown]
